FAERS Safety Report 6299295-1 (Version None)
Quarter: 2009Q3

REPORT INFORMATION
  Report Type: 
  Country: None (occurrence: None)
  Receive Date: 20090806
  Receipt Date: 20090729
  Transmission Date: 20100115
  Serious: Yes (Death, Other)
  Sender: FDA-Public Use
  Company Number: US-TYCO HEALTHCARE/MALLINCKRODT-T200901275

PATIENT
  Sex: Female

DRUGS (1)
  1. OPTIRAY 350 [Suspect]
     Dosage: 100 ML, SINGLE
     Route: 042
     Dates: start: 20090615, end: 20090615

REACTIONS (2)
  - CARDIAC ARREST [None]
  - DYSPNOEA [None]
